FAERS Safety Report 20851351 (Version 1)
Quarter: 2022Q2

REPORT INFORMATION
  Report Type: Spontaneous
  Country: JP (occurrence: JP)
  Receive Date: 20220519
  Receipt Date: 20220519
  Transmission Date: 20220721
  Serious: Yes (Death)
  Sender: FDA-Public Use
  Company Number: JP-JNJFOC-A-CH2016-146299

PATIENT
  Age: 52 Year
  Sex: Male

DRUGS (3)
  1. OPSUMIT [Suspect]
     Active Substance: MACITENTAN
     Indication: Pulmonary hypertension
     Dosage: 10 MG, OD
     Route: 048
     Dates: start: 20151110, end: 20161124
  2. ADCIRCA [Concomitant]
     Active Substance: TADALAFIL
     Route: 048
  3. BERAPROST SODIUM [Concomitant]
     Active Substance: BERAPROST SODIUM
     Indication: Product used for unknown indication

REACTIONS (2)
  - Pulmonary hypertension [Fatal]
  - Off label use [Unknown]
